FAERS Safety Report 22951918 (Version 2)
Quarter: 2023Q4

REPORT INFORMATION
  Report Type: Report from Study
  Country: US (occurrence: US)
  Receive Date: 20230918
  Receipt Date: 20231017
  Transmission Date: 20240110
  Serious: Yes (Death, Other)
  Sender: FDA-Public Use
  Company Number: US-ABBVIE-5410767

PATIENT
  Age: 76 Year
  Sex: Female
  Weight: 58 kg

DRUGS (3)
  1. RINVOQ [Suspect]
     Active Substance: UPADACITINIB
     Indication: Colitis ulcerative
     Dosage: FORM STRENGTH15 MILLIGRAM
     Route: 048
     Dates: start: 202307, end: 20230826
  2. RINVOQ [Suspect]
     Active Substance: UPADACITINIB
     Indication: Colitis ulcerative
     Dosage: FORM STRENGTH45 MILLIGRAM, END DATE 2023
     Route: 048
     Dates: start: 20230525
  3. ELIQUIS [Concomitant]
     Active Substance: APIXABAN
     Indication: Product used for unknown indication

REACTIONS (7)
  - Cardio-respiratory arrest [Fatal]
  - Gastrointestinal haemorrhage [Fatal]
  - Diarrhoea [Not Recovered/Not Resolved]
  - Intestinal perforation [Fatal]
  - Malaise [Not Recovered/Not Resolved]
  - Dyspnoea [Not Recovered/Not Resolved]
  - Gastroenteritis [Not Recovered/Not Resolved]

NARRATIVE: CASE EVENT DATE: 20230825
